FAERS Safety Report 15473218 (Version 2)
Quarter: 2018Q4

REPORT INFORMATION
  Report Type: Spontaneous
  Country: BR (occurrence: BR)
  Receive Date: 20181008
  Receipt Date: 20181120
  Transmission Date: 20190205
  Serious: Yes (Other)
  Sender: FDA-Public Use
  Company Number: BR-009507513-1810BRA001963

PATIENT
  Sex: Female
  Weight: 60 kg

DRUGS (1)
  1. AVIANT (DESLORATADINE) [Suspect]
     Active Substance: DESLORATADINE
     Indication: ANTIALLERGIC THERAPY
     Dosage: 5 MG, 1 TABLET A DAY
     Route: 048
     Dates: start: 20181002, end: 20181002

REACTIONS (5)
  - Glossodynia [Recovered/Resolved]
  - Oedema [Recovered/Resolved]
  - Feeling abnormal [Recovered/Resolved]
  - Oral pain [Recovered/Resolved]
  - Paralysis [Recovered/Resolved]

NARRATIVE: CASE EVENT DATE: 20181002
